FAERS Safety Report 9957242 (Version 1)
Quarter: 2014Q1

REPORT INFORMATION
  Report Type: Report from Study
  Country: US (occurrence: US)
  Receive Date: 20140304
  Receipt Date: 20140304
  Transmission Date: 20141002
  Serious: No
  Sender: FDA-Public Use
  Company Number: US-ABBVIE-13P-163-1096686-00

PATIENT
  Age: 35 Year
  Sex: Male
  Weight: 106.69 kg

DRUGS (2)
  1. HUMIRA [Suspect]
     Indication: PSORIASIS
     Dates: start: 20121108
  2. CLOBEX [Concomitant]
     Indication: PRODUCT USED FOR UNKNOWN INDICATION

REACTIONS (4)
  - Pain [Recovered/Resolved]
  - Rash pustular [Recovered/Resolved]
  - Psoriasis [Not Recovered/Not Resolved]
  - Nausea [Recovered/Resolved]
